FAERS Safety Report 11729090 (Version 1)
Quarter: 2015Q4

REPORT INFORMATION
  Report Type: Spontaneous
  Country: US (occurrence: US)
  Receive Date: 20151112
  Receipt Date: 20151112
  Transmission Date: 20160304
  Serious: No
  Sender: FDA-Public Use
  Company Number: US-VIIV HEALTHCARE LIMITED-US2015158934

PATIENT
  Sex: Female

DRUGS (2)
  1. EPZICOM [Suspect]
     Active Substance: ABACAVIR SULFATE\LAMIVUDINE
     Indication: HIV INFECTION
     Dosage: 600/300
     Route: 048
  2. SUSTIVA [Concomitant]
     Active Substance: EFAVIRENZ

REACTIONS (2)
  - Arthralgia [Unknown]
  - Blood creatine phosphokinase increased [Unknown]
